FAERS Safety Report 8317310-8 (Version None)
Quarter: 2012Q2

REPORT INFORMATION
  Report Type: 
  Country: None (occurrence: None)
  Receive Date: 20120427
  Receipt Date: 20120416
  Transmission Date: 20120825
  Serious: Yes (Hospitalization)
  Sender: FDA-Public Use
  Company Number: CA-JNJFOC-20120113505

PATIENT
  Sex: Male
  Weight: 106.9 kg

DRUGS (5)
  1. PREDNISONE [Concomitant]
     Route: 065
  2. REMICADE [Suspect]
     Indication: CROHN'S DISEASE
     Dosage: HAD TOTAL OF 23 INFUSIONS   36 INFUSIONS
     Route: 042
  3. REMICADE [Suspect]
     Indication: COLITIS ULCERATIVE
     Dosage: HAD TOTAL OF 23 INFUSIONS   36 INFUSIONS
     Route: 042
  4. WARFARIN SODIUM [Concomitant]
     Route: 065
  5. ANTIBIOTICS [Concomitant]
     Route: 065

REACTIONS (3)
  - INTESTINAL OBSTRUCTION [None]
  - BILE DUCT STONE [None]
  - THROMBOSIS [None]
